FAERS Safety Report 8915337 (Version 1)
Quarter: 2012Q4

REPORT INFORMATION
  Report Type: 
  Country: US (occurrence: US)
  Receive Date: 20121119
  Receipt Date: 20121119
  Transmission Date: 20130627
  Serious: No
  Sender: FDA-Public Use
  Company Number: US-PFIZER INC-2012288450

PATIENT
  Sex: Male

DRUGS (1)
  1. LYRICA [Suspect]
     Dosage: 50 mg, once
     Route: 048
     Dates: start: 2012, end: 2012

REACTIONS (2)
  - Insomnia [Unknown]
  - Dysuria [Unknown]
